FAERS Safety Report 8768506 (Version 2)
Quarter: 2014Q1

REPORT INFORMATION
  Report Type: Spontaneous
  Country: US (occurrence: US)
  Receive Date: 20120905
  Receipt Date: 20140109
  Transmission Date: 20141002
  Serious: Yes (Other)
  Sender: FDA-Public Use
  Company Number: US-ROCHE-790753

PATIENT
  Age: 19 Year
  Sex: Male
  Weight: 86.26 kg

DRUGS (2)
  1. ACCUTANE [Suspect]
     Indication: ACNE
     Route: 065
     Dates: start: 1986, end: 1987
  2. ACCUTANE [Suspect]
     Route: 065
     Dates: start: 19871130, end: 1988

REACTIONS (6)
  - Inflammatory bowel disease [Unknown]
  - Colitis ulcerative [Unknown]
  - Emotional distress [Unknown]
  - Diverticulitis [Unknown]
  - Blood triglycerides increased [Unknown]
  - Pharyngitis [Unknown]
